FAERS Safety Report 11045167 (Version 5)
Quarter: 2015Q2

REPORT INFORMATION
  Report Type: Report from Study
  Country: JP (occurrence: JP)
  Receive Date: 20150417
  Receipt Date: 20150525
  Transmission Date: 20150821
  Serious: Yes (Hospitalization)
  Sender: FDA-Public Use
  Company Number: JP-ASTRAZENECA-2015SE33787

PATIENT
  Age: 79 Year
  Sex: Male
  Weight: 54 kg

DRUGS (10)
  1. KALLIDINOGENASE [Concomitant]
     Active Substance: KALLIDINOGENASE
     Route: 048
     Dates: start: 20140818
  2. TAPROS [Concomitant]
     Active Substance: TAFLUPROST
     Route: 047
     Dates: start: 20090109
  3. APLACE [Concomitant]
     Active Substance: TROXIPIDE
     Route: 048
     Dates: start: 20130204
  4. INSULIN [Suspect]
     Active Substance: INSULIN NOS
     Indication: TYPE 2 DIABETES MELLITUS
     Route: 065
  5. MEVALOTIN [Concomitant]
     Active Substance: PRAVASTATIN SODIUM
     Route: 048
     Dates: start: 20130204
  6. TRUSOPT [Concomitant]
     Active Substance: DORZOLAMIDE HYDROCHLORIDE
     Route: 047
     Dates: start: 20090109
  7. ONGLYZA [Suspect]
     Active Substance: SAXAGLIPTIN HYDROCHLORIDE
     Indication: TYPE 2 DIABETES MELLITUS
     Dosage: OPEN LABEL EXTENSION 5 MG DAILY
     Route: 048
     Dates: start: 20150129
  8. ALPHAGAN P [Concomitant]
     Active Substance: BRIMONIDINE TARTRATE
     Route: 047
     Dates: start: 20140428
  9. PLACEBO [Suspect]
     Active Substance: UNSPECIFIED INGREDIENT
     Indication: TYPE 2 DIABETES MELLITUS
     Dosage: BLINDED PHASE
     Route: 048
     Dates: start: 20141007
  10. ITOROL [Concomitant]
     Active Substance: ISOSORBIDE MONONITRATE
     Route: 048
     Dates: start: 20130204

REACTIONS (1)
  - Open angle glaucoma [Recovered/Resolved]

NARRATIVE: CASE EVENT DATE: 20150318
